FAERS Safety Report 5445216-0 (Version None)
Quarter: 2007Q3

REPORT INFORMATION
  Report Type: 
  Country: None (occurrence: None)
  Receive Date: 20070730
  Receipt Date: 20070524
  Transmission Date: 20080115
  Serious: Yes (Life-Threatening, Hospitalization)
  Sender: FDA-Public Use
  Company Number: 240887

PATIENT
  Age: 68 Year
  Sex: Female
  Weight: 59 kg

DRUGS (13)
  1. RITUXAN [Suspect]
     Indication: NON-HODGKIN'S LYMPHOMA
     Dosage: 660 MG, Q3W, INTRAVENOUS; 530 MG
     Route: 042
     Dates: start: 20061121
  2. RITUXAN [Suspect]
     Indication: NON-HODGKIN'S LYMPHOMA
     Dosage: 660 MG, Q3W, INTRAVENOUS; 530 MG
     Route: 042
     Dates: start: 20070103
  3. CYCLOPHOSPHAMIDE [Concomitant]
  4. DOXORUBICIN HCL [Concomitant]
  5. VINCRISTINE [Concomitant]
  6. PREDNISONE TAB [Concomitant]
  7. ACIPHEX [Concomitant]
  8. MULTIVITAMIN (MULTIVITAMINS NOS) [Concomitant]
  9. LASIX [Concomitant]
  10. POTASSIUM CHLORIDE [Concomitant]
  11. TOPROL-XL [Concomitant]
  12. PERCOCET [Concomitant]
  13. PHENERGAN [Concomitant]

REACTIONS (1)
  - PROGRESSIVE MULTIFOCAL LEUKOENCEPHALOPATHY [None]
